FAERS Safety Report 7051918-5 (Version None)
Quarter: 2010Q4

REPORT INFORMATION
  Report Type: 
  Country: None (occurrence: None)
  Receive Date: 20101018
  Receipt Date: 20101018
  Transmission Date: 20110411
  Serious: Yes (Death, Life-Threatening, Hospitalization, Disabling, Other)
  Sender: FDA-Public Use
  Company Number: None

PATIENT
  Age: 75 Year
  Sex: Male
  Weight: 90.7194 kg

DRUGS (1)
  1. AMIODARONE HCL [Suspect]
     Dates: start: 20060228, end: 20060401

REACTIONS (5)
  - AGITATION [None]
  - BRONCHITIS [None]
  - COLOUR BLINDNESS [None]
  - PNEUMONIA [None]
  - PULMONARY FIBROSIS [None]
